FAERS Safety Report 9261460 (Version 1)
Quarter: 2013Q2

REPORT INFORMATION
  Report Type: Spontaneous
  Country: ES (occurrence: ES)
  Receive Date: 20130429
  Receipt Date: 20130429
  Transmission Date: 20140414
  Serious: Yes (Hospitalization)
  Sender: FDA-Public Use
  Company Number: ES-ASTRAZENECA-2013SE26674

PATIENT
  Age: 58 Year
  Sex: Female

DRUGS (6)
  1. ATACAND [Suspect]
     Indication: HYPERTENSION
     Route: 048
     Dates: start: 201202, end: 20120731
  2. CELLCEPT [Interacting]
     Indication: RENAL TRANSPLANT
     Route: 048
     Dates: start: 2006, end: 20120731
  3. CLARITHROMYCIN [Interacting]
     Indication: GASTRITIS
     Route: 048
     Dates: start: 20120723, end: 20120731
  4. FUROSEMIDE [Interacting]
     Indication: OEDEMA PERIPHERAL
     Route: 048
     Dates: start: 201202, end: 20120731
  5. ENALAPRIL [Interacting]
     Indication: HYPERTENSION
     Route: 048
     Dates: start: 201202, end: 20120731
  6. ADVAGRAF [Interacting]
     Indication: RENAL TRANSPLANT
     Route: 048
     Dates: start: 2006, end: 20120731

REACTIONS (3)
  - Drug interaction [Unknown]
  - Renal failure acute [Recovered/Resolved]
  - Tremor [Recovered/Resolved]
